FAERS Safety Report 4665640-3 (Version None)
Quarter: 2005Q2

REPORT INFORMATION
  Report Type: 
  Country: None (occurrence: None)
  Receive Date: 20050517
  Receipt Date: 20050506
  Transmission Date: 20051028
  Serious: Yes (Hospitalization)
  Sender: FDA-Public Use
  Company Number: KII-2005-0016535

PATIENT
  Age: 17 Year
  Sex: Male

DRUGS (5)
  1. OXYCODONE HCL [Suspect]
     Dosage: ORAL
     Route: 048
  2. ACETAMINOPHEN W/ PROPOXYPHENE HCL [Suspect]
     Dosage: ORAL
     Route: 048
  3. PINDOLOL [Suspect]
     Dosage: ORAL
     Route: 048
  4. BENZODIAZEPINE DERIVATIVES () [Suspect]
  5. AMPHETAMINE SULFATE TAB [Suspect]

REACTIONS (6)
  - DRUG SCREEN POSITIVE [None]
  - HYPOVENTILATION [None]
  - LETHARGY [None]
  - PUPILLARY REFLEX IMPAIRED [None]
  - TACHYCARDIA [None]
  - TREMOR [None]
